FAERS Safety Report 24938296 (Version 3)
Quarter: 2025Q2

REPORT INFORMATION
  Report Type: Report from Study
  Country: US (occurrence: US)
  Receive Date: 20250206
  Receipt Date: 20250520
  Transmission Date: 20250717
  Serious: Yes (Hospitalization, Other)
  Sender: TAKEDA
  Company Number: US-TAKEDA-US202026654

PATIENT
  Sex: Male
  Weight: 96.6 kg

DRUGS (66)
  1. HUMAN IMMUNOGLOBULIN G\HYALURONIDASE RECOMBINANT HUMAN [Suspect]
     Active Substance: HUMAN IMMUNOGLOBULIN G\HYALURONIDASE (HUMAN RECOMBINANT)
     Indication: Immunodeficiency common variable
     Dosage: 50 GRAM, Q4WEEKS
     Dates: start: 20160511
  2. HUMAN IMMUNOGLOBULIN G\HYALURONIDASE RECOMBINANT HUMAN [Suspect]
     Active Substance: HUMAN IMMUNOGLOBULIN G\HYALURONIDASE (HUMAN RECOMBINANT)
     Indication: Primary immunodeficiency syndrome
     Dosage: 50 GRAM, Q4WEEKS
     Dates: start: 20160515
  3. HUMAN IMMUNOGLOBULIN G\HYALURONIDASE RECOMBINANT HUMAN [Suspect]
     Active Substance: HUMAN IMMUNOGLOBULIN G\HYALURONIDASE (HUMAN RECOMBINANT)
     Indication: Hypogammaglobulinaemia
     Dosage: 40 GRAM, MONTHLY
  4. HUMAN IMMUNOGLOBULIN G\HYALURONIDASE RECOMBINANT HUMAN [Suspect]
     Active Substance: HUMAN IMMUNOGLOBULIN G\HYALURONIDASE (HUMAN RECOMBINANT)
     Dosage: 50 GRAM, MONTHLY
  5. HUMAN IMMUNOGLOBULIN G\HYALURONIDASE RECOMBINANT HUMAN [Suspect]
     Active Substance: HUMAN IMMUNOGLOBULIN G\HYALURONIDASE (HUMAN RECOMBINANT)
  6. ACETAMINOPHEN [Concomitant]
     Active Substance: ACETAMINOPHEN
  7. DIPHENHYDRAMINE [Concomitant]
     Active Substance: DIPHENHYDRAMINE
  8. SODIUM CHLORIDE [Concomitant]
     Active Substance: SODIUM CHLORIDE
  9. EPINEPHRINE [Concomitant]
     Active Substance: EPINEPHRINE
  10. LIDOCAINE [Concomitant]
     Active Substance: LIDOCAINE
  11. MESALAMINE [Concomitant]
     Active Substance: MESALAMINE
  12. ASPIRIN [Concomitant]
     Active Substance: ASPIRIN
  13. SINGULAIR [Concomitant]
     Active Substance: MONTELUKAST SODIUM
  14. IPRATROPIUM BROMIDE [Concomitant]
     Active Substance: IPRATROPIUM BROMIDE
  15. FUROSEMIDE [Concomitant]
     Active Substance: FUROSEMIDE
  16. TRAMADOL [Concomitant]
     Active Substance: TRAMADOL
  17. PANTOPRAZOLE SODIUM [Concomitant]
     Active Substance: PANTOPRAZOLE SODIUM
  18. FENOFIBRATE [Concomitant]
     Active Substance: FENOFIBRATE
  19. NEFAZODONE [Concomitant]
     Active Substance: NEFAZODONE
  20. MIRTAZAPINE [Concomitant]
     Active Substance: MIRTAZAPINE
  21. GLIMEPIRIDE [Concomitant]
     Active Substance: GLIMEPIRIDE
  22. VIMPAT [Concomitant]
     Active Substance: LACOSAMIDE
  23. VENTOLIN [Concomitant]
     Active Substance: ALBUTEROL SULFATE
  24. FOLIC ACID [Concomitant]
     Active Substance: FOLIC ACID
  25. SYMBICORT [Concomitant]
     Active Substance: BUDESONIDE\FORMOTEROL FUMARATE DIHYDRATE
  26. SEROQUEL [Concomitant]
     Active Substance: QUETIAPINE FUMARATE
  27. ALLOPURINOL [Concomitant]
     Active Substance: ALLOPURINOL
  28. LINZESS [Concomitant]
     Active Substance: LINACLOTIDE
  29. LEVOTHYROXINE [Concomitant]
     Active Substance: LEVOTHYROXINE
  30. FLUTICASONE [Concomitant]
     Active Substance: FLUTICASONE
  31. ZYRTEC [Concomitant]
     Active Substance: CETIRIZINE HYDROCHLORIDE
  32. MELOXICAM [Concomitant]
     Active Substance: MELOXICAM
  33. ERGOTAMINE TARTRATE [Concomitant]
     Active Substance: ERGOTAMINE TARTRATE
  34. METOPROLOL [Concomitant]
     Active Substance: METOPROLOL
  35. METHOTREXATE [Concomitant]
     Active Substance: METHOTREXATE
  36. EVOXAC [Concomitant]
     Active Substance: CEVIMELINE HYDROCHLORIDE
  37. LUNESTA [Concomitant]
     Active Substance: ESZOPICLONE
  38. BENICAR [Concomitant]
     Active Substance: OLMESARTAN MEDOXOMIL
  39. POTASSIUM CHLORIDE [Concomitant]
     Active Substance: POTASSIUM CHLORIDE
  40. ALBUTEROL [Concomitant]
     Active Substance: ALBUTEROL
  41. SULFAMETHOXAZOLE [Concomitant]
     Active Substance: SULFAMETHOXAZOLE
  42. MORPHINE SULFATE [Concomitant]
     Active Substance: MORPHINE SULFATE
  43. OFLOXACIN [Concomitant]
     Active Substance: OFLOXACIN
  44. OXYCODONE HYDROCHLORIDE [Concomitant]
     Active Substance: OXYCODONE HYDROCHLORIDE
  45. DOXYCYCLINE HYCLATE [Concomitant]
     Active Substance: DOXYCYCLINE HYCLATE
  46. SILVER SULFADIAZINE [Concomitant]
     Active Substance: SILVER SULFADIAZINE
  47. WELLBUTRIN [Concomitant]
     Active Substance: BUPROPION HYDROCHLORIDE
  48. SODIUM CHLORIDE [Concomitant]
     Active Substance: SODIUM CHLORIDE
  49. VITAMIN B [Concomitant]
     Active Substance: VITAMIN B
  50. TRIAZOLAM [Concomitant]
     Active Substance: TRIAZOLAM
  51. SALSALATE [Concomitant]
     Active Substance: SALSALATE
  52. LEVOCETIRIZINE DIHYDROCHLORIDE [Concomitant]
     Active Substance: LEVOCETIRIZINE DIHYDROCHLORIDE
  53. VITAMIN D3 [Concomitant]
     Active Substance: CHOLECALCIFEROL
  54. CARDIZEM CD [Concomitant]
     Active Substance: DILTIAZEM HYDROCHLORIDE
  55. TIZANIDINE HYDROCHLORIDE [Concomitant]
     Active Substance: TIZANIDINE HYDROCHLORIDE
  56. ROSUVASTATIN CALCIUM [Concomitant]
     Active Substance: ROSUVASTATIN CALCIUM
  57. VITAMIN A [Concomitant]
     Active Substance: VITAMIN A
  58. RINVOQ [Concomitant]
     Active Substance: UPADACITINIB
  59. ASPIRIN [Concomitant]
     Active Substance: ASPIRIN
  60. DIPHENHYDRAMINE HYDROCHLORIDE [Concomitant]
     Active Substance: DIPHENHYDRAMINE HYDROCHLORIDE
  61. FARXIGA [Concomitant]
     Active Substance: DAPAGLIFLOZIN PROPANEDIOL
  62. NEFAZODONE HYDROCHLORIDE [Concomitant]
     Active Substance: NEFAZODONE HYDROCHLORIDE
  63. VICTOZA [Concomitant]
     Active Substance: LIRAGLUTIDE
  64. ALBUTEROL SULFATE [Concomitant]
     Active Substance: ALBUTEROL SULFATE
  65. ALBUTEROL SULFATE [Concomitant]
     Active Substance: ALBUTEROL SULFATE
  66. FLUTICASONE PROPIONATE [Concomitant]
     Active Substance: FLUTICASONE PROPIONATE

REACTIONS (18)
  - Catheterisation cardiac [Unknown]
  - Chlamydial infection [Not Recovered/Not Resolved]
  - Thrombosis in device [Unknown]
  - Rheumatoid arthritis [Unknown]
  - COVID-19 [Unknown]
  - Cardiac disorder [Not Recovered/Not Resolved]
  - Bronchitis [Not Recovered/Not Resolved]
  - Device infusion issue [Unknown]
  - Infection [Not Recovered/Not Resolved]
  - Intervertebral disc protrusion [Unknown]
  - Needle issue [Unknown]
  - Herpes zoster [Not Recovered/Not Resolved]
  - Infusion site pain [Unknown]
  - Infusion site extravasation [Unknown]
  - Multiple allergies [Recovering/Resolving]
  - Sinusitis [Not Recovered/Not Resolved]
  - Drug hypersensitivity [Unknown]
  - Asthma [Recovering/Resolving]
